FAERS Safety Report 23014326 (Version 2)
Quarter: 2023Q4

REPORT INFORMATION
  Report Type: Spontaneous
  Country: CH (occurrence: CH)
  Receive Date: 20231002
  Receipt Date: 20231009
  Transmission Date: 20240109
  Serious: Yes (Hospitalization, Other)
  Sender: FDA-Public Use
  Company Number: CH-IPSEN Group, Research and Development-2023-22183

PATIENT
  Age: 49 Year
  Sex: Female

DRUGS (2)
  1. BOTULINUM TOXIN TYPE A [Suspect]
     Active Substance: BOTULINUM TOXIN TYPE A
     Indication: Obesity
     Route: 065
  2. BOTULINUM TOXIN TYPE A [Suspect]
     Active Substance: BOTULINUM TOXIN TYPE A
     Indication: Off label use

REACTIONS (8)
  - Gastric perforation [Unknown]
  - Peritonitis [Unknown]
  - Leukocytosis [Unknown]
  - C-reactive protein increased [Unknown]
  - Pneumoperitoneum [Unknown]
  - Gastritis [Unknown]
  - Off label use [Unknown]
  - Incorrect route of product administration [Unknown]
